FAERS Safety Report 8290809-9 (Version None)
Quarter: 2012Q2

REPORT INFORMATION
  Report Type: 
  Country: None (occurrence: None)
  Receive Date: 20120413
  Receipt Date: 20120411
  Transmission Date: 20120825
  Serious: Yes (Other)
  Sender: FDA-Public Use
  Company Number: ADR-2011-10941

PATIENT
  Sex: Female

DRUGS (1)
  1. LIORESAL [Suspect]
     Indication: MUSCLE SPASTICITY
     Dosage: MCG, DAILY, INTRATH
     Route: 037

REACTIONS (10)
  - DEVICE FAILURE [None]
  - CONDITION AGGRAVATED [None]
  - BACK PAIN [None]
  - SCAR [None]
  - POST PROCEDURAL COMPLICATION [None]
  - UNRESPONSIVE TO STIMULI [None]
  - HEADACHE [None]
  - RESPIRATORY FAILURE [None]
  - NUCLEAR MAGNETIC RESONANCE IMAGING ABNORMAL [None]
  - IMPLANT SITE EFFUSION [None]
